FAERS Safety Report 12380662 (Version 2)
Quarter: 2021Q1

REPORT INFORMATION
  Report Type: Other
  Country: CN (occurrence: CN)
  Receive Date: 20160518
  Receipt Date: 20210112
  Transmission Date: 20210419
  Serious: Yes (Hospitalization)
  Sender: FDA-Public Use
  Company Number: CN-ROCHE-1656696

PATIENT
  Age: 80 Year
  Sex: Male
  Weight: 56 kg

DRUGS (24)
  1. RANIBIZUMAB. [Suspect]
     Active Substance: RANIBIZUMAB
     Dosage: PRN
     Route: 050
     Dates: start: 20140516
  2. RANIBIZUMAB. [Suspect]
     Active Substance: RANIBIZUMAB
     Route: 050
     Dates: start: 20150710
  3. RANIBIZUMAB. [Suspect]
     Active Substance: RANIBIZUMAB
     Dosage: PRN
     Route: 050
     Dates: start: 20140117
  4. RANIBIZUMAB. [Suspect]
     Active Substance: RANIBIZUMAB
     Dosage: PRN
     Route: 050
     Dates: start: 20140416
  5. RANIBIZUMAB. [Suspect]
     Active Substance: RANIBIZUMAB
     Dosage: PRN
     Route: 050
     Dates: start: 20141210
  6. RANIBIZUMAB. [Suspect]
     Active Substance: RANIBIZUMAB
     Dosage: PRN
     Route: 050
     Dates: start: 20150612
  7. RANIBIZUMAB. [Suspect]
     Active Substance: RANIBIZUMAB
     Dosage: PRN
     Route: 050
     Dates: start: 20140214
  8. RANIBIZUMAB. [Suspect]
     Active Substance: RANIBIZUMAB
     Dosage: PRN
     Route: 050
     Dates: start: 20140912
  9. RANIBIZUMAB. [Suspect]
     Active Substance: RANIBIZUMAB
     Dosage: PRN
     Route: 050
     Dates: start: 20141010
  10. RANIBIZUMAB. [Suspect]
     Active Substance: RANIBIZUMAB
     Dosage: PRN
     Route: 050
     Dates: start: 20141107
  11. VALSARTAN. [Concomitant]
     Active Substance: VALSARTAN
     Indication: HYPERTENSION
     Route: 048
     Dates: start: 2010
  12. RANIBIZUMAB. [Suspect]
     Active Substance: RANIBIZUMAB
     Dosage: PRN
     Route: 050
     Dates: start: 20131115
  13. RANIBIZUMAB. [Suspect]
     Active Substance: RANIBIZUMAB
     Dosage: PRN
     Route: 050
     Dates: start: 20140711
  14. RANIBIZUMAB. [Suspect]
     Active Substance: RANIBIZUMAB
     Dosage: PRN
     Route: 050
     Dates: start: 20140815
  15. RANIBIZUMAB. [Suspect]
     Active Substance: RANIBIZUMAB
     Dosage: PRN
     Route: 050
     Dates: start: 20150417
  16. RANIBIZUMAB. [Suspect]
     Active Substance: RANIBIZUMAB
     Indication: AGE-RELATED MACULAR DEGENERATION
     Dosage: PRN
     Route: 050
     Dates: start: 20130918
  17. RANIBIZUMAB. [Suspect]
     Active Substance: RANIBIZUMAB
     Dosage: PRN
     Route: 050
     Dates: start: 20140613
  18. RANIBIZUMAB. [Suspect]
     Active Substance: RANIBIZUMAB
     Dosage: PRN
     Route: 050
     Dates: start: 20150109
  19. RANIBIZUMAB. [Suspect]
     Active Substance: RANIBIZUMAB
     Dosage: PRN
     Route: 050
     Dates: start: 20140318
  20. RANIBIZUMAB. [Suspect]
     Active Substance: RANIBIZUMAB
     Dosage: PRN
     Route: 050
     Dates: start: 20150306
  21. AMLODIPINE BESYLATE. [Concomitant]
     Active Substance: AMLODIPINE BESYLATE
     Indication: HYPERTENSION
     Route: 048
     Dates: start: 20140809
  22. RANIBIZUMAB. [Suspect]
     Active Substance: RANIBIZUMAB
     Dosage: PRN
     Route: 050
     Dates: start: 20131018
  23. RANIBIZUMAB. [Suspect]
     Active Substance: RANIBIZUMAB
     Dosage: PRN
     Route: 050
     Dates: start: 20131213
  24. RANIBIZUMAB. [Suspect]
     Active Substance: RANIBIZUMAB
     Dosage: PRN
     Route: 050
     Dates: start: 20150513

REACTIONS (1)
  - Cerebral infarction [Recovering/Resolving]

NARRATIVE: CASE EVENT DATE: 20150721
